FAERS Safety Report 21478734 (Version 1)
Quarter: 2022Q4

REPORT INFORMATION
  Report Type: Spontaneous
  Country: DE (occurrence: DE)
  Receive Date: 20221019
  Receipt Date: 20221019
  Transmission Date: 20230113
  Serious: Yes (Other)
  Sender: FDA-Public Use
  Company Number: DE-SA-2022SA416534

PATIENT
  Age: 74 Year
  Sex: Male

DRUGS (4)
  1. CLOPIDOGREL BISULFATE [Suspect]
     Active Substance: CLOPIDOGREL BISULFATE
     Indication: Deep vein thrombosis
     Dosage: UNK
  2. TINZAPARIN [Suspect]
     Active Substance: TINZAPARIN
     Indication: Deep vein thrombosis
     Dosage: UNK
  3. TINZAPARIN [Suspect]
     Active Substance: TINZAPARIN
     Dosage: FULL HEPARINIZATION
  4. TINZAPARIN [Suspect]
     Active Substance: TINZAPARIN
     Dosage: 7500 IU, BID
     Route: 058

REACTIONS (5)
  - Eye haemorrhage [Recovering/Resolving]
  - Retinal haemorrhage [Recovering/Resolving]
  - Visual impairment [Recovering/Resolving]
  - Retinal detachment [Recovering/Resolving]
  - Hyphaema [Recovering/Resolving]
